FAERS Safety Report 10143311 (Version 3)
Quarter: 2014Q2

REPORT INFORMATION
  Report Type: Report from Study
  Country: FR (occurrence: FR)
  Receive Date: 20140430
  Receipt Date: 20140623
  Transmission Date: 20141212
  Serious: Yes (Life-Threatening, Hospitalization, Other)
  Sender: FDA-Public Use
  Company Number: PHHY2014FR050950

PATIENT
  Age: 66 Year
  Sex: Female

DRUGS (4)
  1. MYFORTIC [Suspect]
     Indication: PROPHYLAXIS AGAINST TRANSPLANT REJECTION
     Dosage: 1440 MG, DAILY
     Route: 048
     Dates: start: 20131001, end: 20140204
  2. MYCOPHENOLATE MOFETIL [Suspect]
     Indication: PROPHYLAXIS AGAINST TRANSPLANT REJECTION
     Dates: end: 20140207
  3. PROGRAF [Suspect]
     Indication: PROPHYLAXIS AGAINST TRANSPLANT REJECTION
     Dosage: 8 MG, UNK
     Dates: start: 20130521, end: 20140207
  4. TAHOR [Concomitant]

REACTIONS (14)
  - Pneumocystis jirovecii pneumonia [Recovered/Resolved]
  - Acute respiratory distress syndrome [Unknown]
  - Lung disorder [Unknown]
  - Cough [Unknown]
  - Dyspnoea [Unknown]
  - Cerebral haematoma [Recovered/Resolved with Sequelae]
  - Hemiplegia [Unknown]
  - Neuromyopathy [Unknown]
  - Renal failure [Recovering/Resolving]
  - Herpes simplex [Unknown]
  - Myalgia [Not Recovered/Not Resolved]
  - Dehydration [Unknown]
  - Asthenia [Not Recovered/Not Resolved]
  - Aspergillus infection [Unknown]
